FAERS Safety Report 8540123 (Version 2)
Quarter: 2013Q3

REPORT INFORMATION
  Report Type: Report from Study
  Country: CA (occurrence: CA)
  Receive Date: 20120502
  Receipt Date: 20130912
  Transmission Date: 20140515
  Serious: Yes (Other)
  Sender: FDA-Public Use
  Company Number: PHHY2012CA036789

PATIENT
  Age: 68 Year
  Sex: Female
  Weight: 56 kg

DRUGS (11)
  1. ACLASTA/ZOLEDRONATE [Suspect]
     Indication: OSTEOPOROSIS
     Dosage: UNK UKN, UNK
     Route: 042
     Dates: start: 20100316
  2. ACLASTA/ZOLEDRONATE [Suspect]
     Dosage: UNK UKN, UNK
     Route: 042
     Dates: start: 20110315
  3. ACLASTA/ZOLEDRONATE [Suspect]
     Dosage: UNK UKN, UNK
     Route: 042
     Dates: start: 20120313
  4. ACTONEL [Concomitant]
     Dosage: 70 MG, UNK
     Dates: start: 1997
  5. DIDROCAL [Concomitant]
     Dosage: 400 MG, UNK
  6. EVISTA [Concomitant]
     Dosage: 670 MG, UNK
  7. HORMONES NOS [Concomitant]
  8. FORTEO [Concomitant]
  9. MIACALCIN [Concomitant]
     Dosage: 200 IU, UNK
  10. VITAMIN D [Concomitant]
     Dosage: UNK UKN, UNK
  11. CALCIUM [Concomitant]
     Dosage: UNK UKN, UNK

REACTIONS (2)
  - Thoracic vertebral fracture [Unknown]
  - Pathological fracture [Unknown]
